FAERS Safety Report 5925216-4 (Version None)
Quarter: 2008Q4

REPORT INFORMATION
  Report Type: 
  Country: None (occurrence: None)
  Receive Date: 20081021
  Receipt Date: 20081009
  Transmission Date: 20090506
  Serious: Yes (Life-Threatening, Hospitalization)
  Sender: FDA-Public Use
  Company Number: PHHO2008FR04775

PATIENT
  Sex: Male
  Weight: 62 kg

DRUGS (5)
  1. ERL 080A ERL+TAB [Suspect]
     Indication: RENAL TRANSPLANT
     Dosage: 1080 MG/DAILY
     Route: 048
     Dates: start: 20080313, end: 20080313
  2. SUXAMETHONIUM [Suspect]
  3. ROCURONIUM BROMIDE [Suspect]
  4. CISATRACURIUM [Suspect]
  5. ATRACURIUM BESYLATE [Suspect]

REACTIONS (1)
  - ANAPHYLACTIC REACTION [None]
